FAERS Safety Report 8107020-4 (Version None)
Quarter: 2012Q1

REPORT INFORMATION
  Report Type: 
  Country: None (occurrence: None)
  Receive Date: 20120202
  Receipt Date: 20120202
  Transmission Date: 20120608
  Serious: Yes (Life-Threatening, Other)
  Sender: FDA-Public Use
  Company Number: None

PATIENT
  Age: 35 Year
  Sex: Female
  Weight: 79.378 kg

DRUGS (1)
  1. COPAXONE [Suspect]
     Indication: MULTIPLE SCLEROSIS
     Dosage: 20.0 MG
     Route: 058
     Dates: start: 20011001, end: 20120127

REACTIONS (8)
  - HEART RATE INCREASED [None]
  - CARDIOVASCULAR DISORDER [None]
  - INCORRECT ROUTE OF DRUG ADMINISTRATION [None]
  - FLUSHING [None]
  - FEELING COLD [None]
  - CHEST PAIN [None]
  - CHEST DISCOMFORT [None]
  - TREMOR [None]
